FAERS Safety Report 6819290-0 (Version None)
Quarter: 2010Q3

REPORT INFORMATION
  Report Type: 
  Country: None (occurrence: None)
  Receive Date: 20100707
  Receipt Date: 20100706
  Transmission Date: 20110219
  Serious: Yes (Other)
  Sender: FDA-Public Use
  Company Number: US-RB-012547-10

PATIENT
  Age: 72 Year
  Sex: Male

DRUGS (1)
  1. MUCINEX DM [Suspect]
     Indication: RESPIRATORY TRACT CONGESTION
     Dosage: PRODUCT TAKEN FOR 3 OR 4 MONTHS
     Route: 048
     Dates: start: 20100101

REACTIONS (2)
  - BLOOD PRESSURE INCREASED [None]
  - INCORRECT DRUG ADMINISTRATION DURATION [None]
